APPROVED DRUG PRODUCT: SODIUM CHLORIDE IN PLASTIC CONTAINER
Active Ingredient: SODIUM CHLORIDE
Strength: 900MG/100ML
Dosage Form/Route: SOLUTION;IRRIGATION
Application: N018247 | Product #001
Applicant: MILES LABORATORIES INC
Approved: Approved Prior to Jan 1, 1982 | RLD: No | RS: No | Type: DISCN